FAERS Safety Report 7019559-3 (Version None)
Quarter: 2010Q3

REPORT INFORMATION
  Report Type: 
  Country: None (occurrence: None)
  Receive Date: 20100928
  Receipt Date: 20100928
  Transmission Date: 20110219
  Serious: Yes (Other)
  Sender: FDA-Public Use
  Company Number: None

PATIENT
  Age: 72 Year
  Sex: Female
  Weight: 62.5964 kg

DRUGS (1)
  1. GAVILYTE-G N/A NOVEL LABS, SOMERSET, NJ [Suspect]
     Indication: COLONOSCOPY
     Dosage: POWDER IN 4 LITER BOTTLE ONCE PO
     Route: 048
     Dates: start: 20100921, end: 20100922

REACTIONS (2)
  - ABDOMINAL PAIN [None]
  - PRODUCT SUBSTITUTION ISSUE [None]
